FAERS Safety Report 17657481 (Version 2)
Quarter: 2020Q4

REPORT INFORMATION
  Report Type: Spontaneous
  Country: US (occurrence: US)
  Receive Date: 20200410
  Receipt Date: 20201230
  Transmission Date: 20210113
  Serious: Yes (Death, Hospitalization, Other)
  Sender: FDA-Public Use
  Company Number: US-NAPPMUNDI-USA-2020-0151433

PATIENT
  Age: 76 Year
  Sex: Female

DRUGS (2)
  1. OXYCODONE HYDROCHLORIDE (SIMILAR TO NDA 22-272) [Suspect]
     Active Substance: OXYCODONE HYDROCHLORIDE
     Indication: PAIN
     Dosage: 30 MG, UNK
     Route: 065
     Dates: start: 2017, end: 201912
  2. OXYCONTIN [Suspect]
     Active Substance: OXYCODONE HYDROCHLORIDE
     Indication: PAIN
     Dosage: 60 MG, TID
     Route: 048
     Dates: start: 1993, end: 20191030

REACTIONS (5)
  - Drug withdrawal syndrome [Fatal]
  - Cerebrovascular accident [Fatal]
  - Seizure [Unknown]
  - Drug dependence [Unknown]
  - Organ failure [Fatal]

NARRATIVE: CASE EVENT DATE: 20191117
